FAERS Safety Report 19977159 (Version 2)
Quarter: 2022Q4

REPORT INFORMATION
  Report Type: Spontaneous
  Country: US (occurrence: US)
  Receive Date: 20211020
  Receipt Date: 20221018
  Transmission Date: 20230113
  Serious: No
  Sender: FDA-Public Use
  Company Number: US-ALLERGAN-2130579US

PATIENT
  Age: 69 Year
  Sex: Male

DRUGS (2)
  1. LINZESS [Suspect]
     Active Substance: LINACLOTIDE
     Indication: Irritable bowel syndrome
     Dosage: 145 ?G, QAM
  2. SENNA LEAF [Concomitant]
     Active Substance: SENNA LEAF
     Dosage: TWO 25 MG TABLETS AT NIGHT

REACTIONS (1)
  - Drug ineffective [Unknown]
